FAERS Safety Report 10024567 (Version 1)
Quarter: 2014Q1

REPORT INFORMATION
  Report Type: Spontaneous
  Country: ES (occurrence: ES)
  Receive Date: 20140320
  Receipt Date: 20140320
  Transmission Date: 20141002
  Serious: Yes (Life-Threatening, Hospitalization, Disabling)
  Sender: FDA-Public Use
  Company Number: PHHY2014ES032400

PATIENT
  Age: 63 Year
  Sex: Female

DRUGS (2)
  1. VOLTAREN [Suspect]
     Indication: BACK PAIN
     Dosage: 75 MG, UNK
     Route: 030
     Dates: start: 20131028, end: 20131028
  2. NOLOTIL [Suspect]
     Indication: BACK PAIN
     Dosage: (0.4 G/ML)
     Route: 030
     Dates: start: 20131028, end: 20131028

REACTIONS (6)
  - Septic shock [Recovered/Resolved with Sequelae]
  - Multi-organ failure [Recovered/Resolved with Sequelae]
  - Injection site cellulitis [Recovered/Resolved]
  - Injection site pain [Unknown]
  - Pyrexia [Unknown]
  - Injection site erythema [Unknown]
